FAERS Safety Report 7670190-6 (Version None)
Quarter: 2011Q3

REPORT INFORMATION
  Report Type: 
  Country: None (occurrence: None)
  Receive Date: 20110808
  Receipt Date: 20110729
  Transmission Date: 20111222
  Serious: Yes (Other)
  Sender: FDA-Public Use
  Company Number: US-ASTRAZENECA-2011SE10432

PATIENT
  Age: 23 Year
  Sex: Female
  Weight: 61.2 kg

DRUGS (6)
  1. CYMBALTA [Suspect]
     Indication: DEPRESSION
     Route: 048
  2. SEROQUEL [Suspect]
     Route: 048
     Dates: start: 20110101
  3. SEROQUEL [Suspect]
     Route: 048
     Dates: start: 20110101
  4. SEROQUEL [Suspect]
     Indication: DEPRESSION
     Route: 048
  5. CYMBALTA [Suspect]
     Indication: BIPOLAR DISORDER
     Route: 048
  6. SEROQUEL [Suspect]
     Indication: BIPOLAR DISORDER
     Route: 048

REACTIONS (7)
  - DRUG INEFFECTIVE [None]
  - NASOPHARYNGITIS [None]
  - LOSS OF CONSCIOUSNESS [None]
  - DEPRESSION [None]
  - UNEMPLOYMENT [None]
  - BIPOLAR DISORDER [None]
  - THERAPEUTIC RESPONSE UNEXPECTED [None]
